FAERS Safety Report 10409754 (Version 1)
Quarter: 2014Q3

REPORT INFORMATION
  Report Type: Spontaneous
  Country: CH (occurrence: CH)
  Receive Date: 20140826
  Receipt Date: 20140826
  Transmission Date: 20150326
  Serious: Yes (Congenital Anomaly)
  Sender: FDA-Public Use
  Company Number: CH-SA-2014SA110846

PATIENT
  Sex: Female
  Weight: 1.52 kg

DRUGS (14)
  1. ATARAX [Suspect]
     Active Substance: HYDROXYZINE\HYDROXYZINE HYDROCHLORIDE
     Route: 064
  2. TRAMADOL [Suspect]
     Active Substance: TRAMADOL
     Route: 064
  3. PETHIDINE [Suspect]
     Active Substance: MEPERIDINE
     Route: 064
  4. PRAVASTATIN [Suspect]
     Active Substance: PRAVASTATIN\PRAVASTATIN SODIUM
     Route: 064
  5. NOZINAN [Suspect]
     Active Substance: LEVOMEPROMAZINE
     Route: 064
  6. TRANDATE [Concomitant]
     Active Substance: LABETALOL HYDROCHLORIDE
     Indication: PRE-ECLAMPSIA
     Route: 064
  7. ZOPICLONE [Suspect]
     Active Substance: ZOPICLONE
     Route: 064
  8. NEXIUM [Suspect]
     Active Substance: ESOMEPRAZOLE MAGNESIUM
     Route: 064
  9. DEPAKINE CHRONO [Suspect]
     Active Substance: VALPROATE SODIUM
     Indication: EPILEPSY
     Route: 064
  10. MAGNESIUM SULFATE [Concomitant]
     Active Substance: MAGNESIUM SULFATE
     Route: 064
  11. LEXOTANIL [Suspect]
     Active Substance: BROMAZEPAM
     Route: 064
     Dates: start: 201312
  12. TEMESTA [Suspect]
     Active Substance: LORAZEPAM
     Route: 064
  13. STILNOX [Suspect]
     Active Substance: ZOLPIDEM TARTRATE
     Route: 064
  14. EUTHYROX [Concomitant]
     Active Substance: LEVOTHYROXINE SODIUM
     Route: 064

REACTIONS (6)
  - Neonatal hyponatraemia [Recovered/Resolved]
  - Foetal growth restriction [Recovered/Resolved]
  - Premature baby [Recovered/Resolved]
  - Microcephaly [Unknown]
  - Neonatal behavioural syndrome [Recovered/Resolved]
  - Exposure during pregnancy [Recovered/Resolved]

NARRATIVE: CASE EVENT DATE: 2013
